FAERS Safety Report 8254815-2 (Version None)
Quarter: 2012Q2

REPORT INFORMATION
  Report Type: 
  Country: None (occurrence: None)
  Receive Date: 20120403
  Receipt Date: 20120328
  Transmission Date: 20120825
  Serious: Yes (Hospitalization, Other)
  Sender: FDA-Public Use
  Company Number: PHHY2011US06527

PATIENT
  Sex: Female

DRUGS (2)
  1. EXJADE [Suspect]
     Indication: SICKLE CELL ANAEMIA
     Dosage: 500 MG, QD
     Route: 048
  2. EXJADE [Suspect]
     Dosage: 1000 MG, QD
     Route: 048

REACTIONS (3)
  - MYOCARDIAL INFARCTION [None]
  - DIARRHOEA [None]
  - SICKLE CELL ANAEMIA WITH CRISIS [None]
